FAERS Safety Report 6089638-6 (Version None)
Quarter: 2009Q1

REPORT INFORMATION
  Report Type: 
  Country: None (occurrence: None)
  Receive Date: 20090224
  Receipt Date: 20090212
  Transmission Date: 20090719
  Serious: Yes (Hospitalization, Disabling)
  Sender: FDA-Public Use
  Company Number: US-WYE-H08188309

PATIENT
  Sex: Female
  Weight: 68.1 kg

DRUGS (4)
  1. PREMARIN [Interacting]
     Indication: HORMONE REPLACEMENT THERAPY
     Route: 048
     Dates: start: 20080801, end: 20090101
  2. PREMARIN [Interacting]
     Route: 048
     Dates: start: 20090101
  3. LITHIUM [Interacting]
     Indication: DEPRESSION
     Route: 065
     Dates: start: 20090208
  4. PRISTIQ [Suspect]
     Indication: DEPRESSION
     Route: 048
     Dates: start: 20081001, end: 20090206

REACTIONS (9)
  - BIPOLAR I DISORDER [None]
  - DEPRESSION [None]
  - DRUG INTERACTION [None]
  - DRUG WITHDRAWAL SYNDROME [None]
  - FEELING ABNORMAL [None]
  - HEADACHE [None]
  - INFLUENZA LIKE ILLNESS [None]
  - MEMORY IMPAIRMENT [None]
  - NAUSEA [None]
